FAERS Safety Report 14346730 (Version 2)
Quarter: 2018Q1

REPORT INFORMATION
  Report Type: Spontaneous
  Country: GB (occurrence: GB)
  Receive Date: 20180103
  Receipt Date: 20180109
  Transmission Date: 20180509
  Serious: Yes (Life-Threatening)
  Sender: FDA-Public Use
  Company Number: GB-JNJFOC-20171237149

PATIENT
  Age: 49 Year
  Sex: Female

DRUGS (2)
  1. NORETHISTERONE ACETATE [Suspect]
     Active Substance: NORETHINDRONE ACETATE
     Indication: MENORRHAGIA
     Route: 048
     Dates: start: 20171012, end: 20171206
  2. NORETHISTERONE ACETATE [Suspect]
     Active Substance: NORETHINDRONE ACETATE
     Indication: MENORRHAGIA
     Route: 048
     Dates: start: 20171012, end: 20171206

REACTIONS (4)
  - Off label use [Unknown]
  - Dyspnoea [Unknown]
  - Pulmonary embolism [Recovering/Resolving]
  - Product use in unapproved indication [Unknown]

NARRATIVE: CASE EVENT DATE: 20171012
